FAERS Safety Report 4586545-2 (Version None)
Quarter: 2005Q1

REPORT INFORMATION
  Report Type: 
  Country: None (occurrence: None)
  Receive Date: 20050218
  Receipt Date: 20040224
  Transmission Date: 20050727
  Serious: No
  Sender: FDA-Public Use
  Company Number: US-BRISTOL-MYERS SQUIBB COMPANY-12515565

PATIENT
  Age: 56 Year
  Sex: Male
  Weight: 86 kg

DRUGS (1)
  1. TAXOL [Suspect]
     Indication: LUNG NEOPLASM MALIGNANT
     Dosage: EVERY 3 WEEKS FOR 3 DAYS; DISCONTINUED IN JAN-04
     Route: 042
     Dates: start: 20031001, end: 20031001

REACTIONS (1)
  - INJECTION SITE REACTION [None]
